FAERS Safety Report 6660468-7 (Version None)
Quarter: 2010Q1

REPORT INFORMATION
  Report Type: 
  Country: None (occurrence: None)
  Receive Date: 20100326
  Receipt Date: 20100310
  Transmission Date: 20100710
  Serious: Yes (Other)
  Sender: FDA-Public Use
  Company Number: 2010030052

PATIENT
  Age: 46 Year
  Sex: Female

DRUGS (2)
  1. FENTANYL-100 [Suspect]
     Indication: BREAKTHROUGH PAIN
     Dosage: (400 MCG), OROMUCOSAL
  2. METHADONE HCL [Suspect]
     Indication: BREAKTHROUGH PAIN
     Dosage: 12 MG (12 MG, 1 IN 1 D), INTRAVENOUS, 30 MG 930 MG, 1 IN 1 D), INTRAVENOUS
     Route: 042

REACTIONS (8)
  - CENTRAL NERVOUS SYSTEM MASS [None]
  - CONFUSIONAL STATE [None]
  - MOTOR DYSFUNCTION [None]
  - MYOCLONUS [None]
  - NERVOUS SYSTEM DISORDER [None]
  - QUADRIPLEGIA [None]
  - SOMNOLENCE [None]
  - SPINAL CORD COMPRESSION [None]
